FAERS Safety Report 5481603-2 (Version None)
Quarter: 2007Q4

REPORT INFORMATION
  Report Type: 
  Country: None (occurrence: None)
  Receive Date: 20071010
  Receipt Date: 20071001
  Transmission Date: 20080405
  Serious: Yes (Other)
  Sender: FDA-Public Use
  Company Number: US-ASTRAZENECA-2007AC01883

PATIENT
  Age: 66 Year
  Sex: Female

DRUGS (4)
  1. LISINOPRIL [Suspect]
  2. LEVOTHYROXINE SODIUM [Concomitant]
  3. ESOMEPRAZOLE [Concomitant]
  4. SERTRALINE HCL [Concomitant]

REACTIONS (2)
  - CHOLESTASIS [None]
  - LIVER DISORDER [None]
